FAERS Safety Report 24904235 (Version 1)
Quarter: 2025Q1

REPORT INFORMATION
  Report Type: Spontaneous
  Country: CA (occurrence: CA)
  Receive Date: 20250130
  Receipt Date: 20250130
  Transmission Date: 20250409
  Serious: Yes (Hospitalization, Other)
  Sender: CSL BEHRING
  Company Number: CA-BEH-2025193524

PATIENT
  Sex: Female

DRUGS (1)
  1. HUMAN IMMUNOGLOBULIN G [Suspect]
     Active Substance: HUMAN IMMUNOGLOBULIN G
     Indication: Secondary immunodeficiency
     Dosage: 8 G, QW
     Route: 058

REACTIONS (7)
  - Arthritis [Recovering/Resolving]
  - Cardiac disorder [Recovering/Resolving]
  - Infection [Recovering/Resolving]
  - Product availability issue [Recovering/Resolving]
  - Sepsis [Recovering/Resolving]
  - Therapy interrupted [Recovering/Resolving]
  - Off label use [Unknown]
